FAERS Safety Report 11928325 (Version 1)
Quarter: 2016Q1

REPORT INFORMATION
  Report Type: Spontaneous
  Country: DE (occurrence: DE)
  Receive Date: 20160119
  Receipt Date: 20160119
  Transmission Date: 20160526
  Serious: Yes (Other)
  Sender: FDA-Public Use
  Company Number: DE-BIOGEN-2016BI00174178

PATIENT
  Sex: Female
  Weight: 67.8 kg

DRUGS (2)
  1. L-THYROXINE [Concomitant]
     Active Substance: LEVOTHYROXINE
     Indication: PRODUCT USED FOR UNKNOWN INDICATION
     Route: 065
     Dates: start: 20151219
  2. AVONEX [Suspect]
     Active Substance: INTERFERON BETA-1A
     Indication: CLINICALLY ISOLATED SYNDROME
     Route: 030
     Dates: start: 20151225, end: 20160108

REACTIONS (3)
  - Hepatic enzyme increased [Not Recovered/Not Resolved]
  - Jaundice [Not Recovered/Not Resolved]
  - Ocular icterus [Not Recovered/Not Resolved]
